FAERS Safety Report 7491152-8 (Version None)
Quarter: 2011Q2

REPORT INFORMATION
  Report Type: 
  Country: None (occurrence: None)
  Receive Date: 20110518
  Receipt Date: 20110429
  Transmission Date: 20111010
  Serious: Yes (Hospitalization, Other)
  Sender: FDA-Public Use
  Company Number: JPI-P-014865

PATIENT
  Age: 73 Year
  Sex: Male

DRUGS (3)
  1. IMMUNOSUPPRESSANTS [Concomitant]
  2. XYREM [Suspect]
     Indication: PRODUCT USED FOR UNKNOWN INDICATION
     Dosage: 4.5 GM (2.25 GM, 2 IN 1 D), ORAL 9 GM (4.5 GM, 2 IN 1 D), ORAL
     Route: 048
     Dates: start: 20030114
  3. XYREM [Suspect]
     Indication: PRODUCT USED FOR UNKNOWN INDICATION
     Dosage: 4.5 GM (2.25 GM, 2 IN 1 D), ORAL 9 GM (4.5 GM, 2 IN 1 D), ORAL
     Route: 048
     Dates: start: 20021204

REACTIONS (4)
  - FALL [None]
  - LACERATION [None]
  - HEAD INJURY [None]
  - SPINAL FRACTURE [None]
